FAERS Safety Report 5702258-5 (Version None)
Quarter: 2008Q2

REPORT INFORMATION
  Report Type: 
  Country: None (occurrence: None)
  Receive Date: 20080411
  Receipt Date: 20080214
  Transmission Date: 20081010
  Serious: No
  Sender: FDA-Public Use
  Company Number: US-ABBOTT-08P-163-0438569-00

PATIENT
  Sex: Female
  Weight: 52.21 kg

DRUGS (8)
  1. DEPAKOTE [Suspect]
     Indication: BIPOLAR DISORDER
     Route: 048
     Dates: start: 19910101, end: 20070101
  2. DEPAKOTE [Suspect]
     Route: 048
     Dates: start: 20071101
  3. STRATTERA [Concomitant]
     Indication: BIPOLAR DISORDER
     Route: 048
  4. LORAZEPAM [Concomitant]
     Indication: BIPOLAR DISORDER
     Route: 048
  5. CARVEDILOL [Concomitant]
     Indication: CARDIAC FAILURE
     Route: 048
     Dates: start: 20010101
  6. CELECOXIB [Concomitant]
     Indication: DRUG USE FOR UNKNOWN INDICATION
     Route: 048
  7. LORTAB [Concomitant]
     Indication: PAIN
     Route: 048
  8. LITHIUM CARBONATE [Concomitant]
     Indication: HEAD INJURY
     Route: 048
     Dates: start: 19800101, end: 19910101

REACTIONS (1)
  - FEELING ABNORMAL [None]
